FAERS Safety Report 23492382 (Version 1)
Quarter: 2024Q1

REPORT INFORMATION
  Report Type: Spontaneous
  Country: US (occurrence: US)
  Receive Date: 20240207
  Receipt Date: 20240207
  Transmission Date: 20240410
  Serious: Yes (Death, Other)
  Sender: FDA-Public Use
  Company Number: US-BRISTOL-MYERS SQUIBB COMPANY-2024-015933

PATIENT
  Age: 80 Year
  Sex: Male

DRUGS (43)
  1. REVLIMID [Suspect]
     Active Substance: LENALIDOMIDE
     Indication: Plasma cell myeloma
     Dosage: FREQUENCY: DAILY
     Route: 048
     Dates: start: 20200828, end: 202401
  2. REVLIMID [Suspect]
     Active Substance: LENALIDOMIDE
     Dosage: TAKE 1 CAPSULE BY MOUTH DAILY FOR 21 DAYS, FOLLOW WITH 7 DAYS OFF.
     Route: 048
     Dates: start: 20231118
  3. ALLOPURINOL [Concomitant]
     Active Substance: ALLOPURINOL
     Indication: Product used for unknown indication
     Dosage: TAKE 1 TABLETS BY MOUTH EVERY DAY.
     Route: 048
  4. ALPRAZOLAM [Concomitant]
     Active Substance: ALPRAZOLAM
     Indication: Insomnia
     Dosage: TAKE 1 TABLET BY MOUTH EVERY DAY AT BEDTIME AS NEEDED FOR INSOMNIA
     Route: 048
  5. ALPRAZOLAM [Concomitant]
     Active Substance: ALPRAZOLAM
     Dosage: TAKE 1 TABLET BY MOUTH EVERY DAY AT BEDTIME AS NEEDED FOR INSOMNIA
     Route: 048
  6. AMIODARONE [Concomitant]
     Active Substance: AMIODARONE
     Indication: Product used for unknown indication
     Dosage: TAKE 1 TABLET (200 MG) BY MOUTH IN THE MORNING.
     Route: 048
  7. AMMONIUM LACTATE [Concomitant]
     Active Substance: AMMONIUM LACTATE
     Indication: Product used for unknown indication
     Dosage: 12% APPLY TO AFFECTED AREA OF FEET NIGHLY
  8. AMOXICILLIN [Concomitant]
     Active Substance: AMOXICILLIN
     Indication: Product used for unknown indication
     Dosage: TAKE 4 TABLETS BY MOUTH 1 HOUR BEFORE SURGERY THEN TAKE 1 TABLET BY MOUTH EVERY 6 HOURS UNTILL GONE.
     Route: 048
  9. ANASTROZOLE [Concomitant]
     Active Substance: ANASTROZOLE
     Indication: Product used for unknown indication
     Dosage: TAKE 1/2 TABLET BY MOUTH EVERY 7 DAYS
     Route: 048
  10. AZITHROMYCIN [Concomitant]
     Active Substance: AZITHROMYCIN
     Indication: Product used for unknown indication
     Dosage: 6 PAK FOLLOW PACKAGE DIRECTIONS
  11. B-DOSE [Concomitant]
     Indication: Product used for unknown indication
     Dosage: 5195 NEEDLES 18 GX1 FOR USE WITH TESTOSTERONE
  12. B-DOSE [Concomitant]
     Dosage: 9574 SYR/NDL 3 ML 22GX1-1/2LL FOR USE WITH TESTOSTERONE
  13. BENZONATATE [Concomitant]
     Active Substance: BENZONATATE
     Indication: Product used for unknown indication
     Dosage: TAKE 1 CAPSULE BY MOUTH THREE TIMES DAILY FOR 10 DAYS AS NEEDED.
     Route: 048
  14. BUMETANIDE [Concomitant]
     Active Substance: BUMETANIDE
     Indication: Product used for unknown indication
     Dosage: TAKE 1 TABLET BY MOUTH DAILY.
     Route: 048
  15. BUMETANIDE [Concomitant]
     Active Substance: BUMETANIDE
     Dosage: TAKE 1 TABLET BY MOUTH ONCE OR TWICE DAILY IF NEEDED FOR FLUID CHANGE
     Route: 048
  16. CHLORHEXIDINE [Concomitant]
     Active Substance: CHLORHEXIDINE\CHLORHEXIDINE GLUCONATE
     Indication: Product used for unknown indication
     Dosage: 0.12% ORAL RINS 473 ML SWISH 15 ML TWICE DAILY THEN SPIT OUT. DO NOT EAT OR DRINK 30 MINUTES AFTER U
     Route: 048
  17. CIPROFLOXACIN [Concomitant]
     Active Substance: CIPROFLOXACIN
     Indication: Product used for unknown indication
     Dosage: TAKE 1 TABLET BY MOUTH TWICE DAILY FOR 5 DAYS
     Route: 048
  18. CLOPIDOGREL [Concomitant]
     Active Substance: CLOPIDOGREL BISULFATE
     Indication: Product used for unknown indication
     Dosage: TAKE 1 TABLET BY MOUTH DAILY
     Route: 048
  19. BETAMETHASONE\CLOTRIMAZOLE [Concomitant]
     Active Substance: BETAMETHASONE\CLOTRIMAZOLE
     Indication: Product used for unknown indication
     Dosage: APPLY TO THE AFFECTED AREA TWICE DAILY.COVER WITH VASELINE AFTER EACH APPLICATION.
  20. COLCHICINE [Concomitant]
     Active Substance: COLCHICINE
     Indication: Gout
     Dosage: TAKE 1 TABLET BY MOUTH DAILY
     Route: 048
  21. COLCHICINE [Concomitant]
     Active Substance: COLCHICINE
     Dosage: TAKE 1/2 TABLET(0.3 MG) BY MOUTH TWICE DAILY
     Route: 048
  22. COLCHICINE [Concomitant]
     Active Substance: COLCHICINE
     Dosage: TAKE 1 TABLET BY MOUTH EVERY DAY AS NEEDED FOR GOUT
     Route: 048
  23. DEXAMETHASONE [Concomitant]
     Active Substance: DEXAMETHASONE
     Indication: Product used for unknown indication
     Dosage: TAKE 10 TABLET BY MOUTH ONCE A WEEK.
     Route: 048
  24. ELIQUIS [Concomitant]
     Active Substance: APIXABAN
     Indication: Product used for unknown indication
     Dosage: TAKE 1 TABLET BY MOUTH TWICE DAILY
     Route: 048
  25. ENTRESTO [Concomitant]
     Active Substance: SACUBITRIL\VALSARTAN
     Indication: Product used for unknown indication
     Dosage: 24-26 MG TAKE 1/2 TABLET BY MOUTH TWICE DAILY
     Route: 048
  26. ENTRESTO [Concomitant]
     Active Substance: SACUBITRIL\VALSARTAN
     Dosage: 24-26 MG TAKE 1 TABLET BY MOUTH TWICE DAILY
     Route: 048
  27. HYDROCORTISONE [Concomitant]
     Active Substance: HYDROCORTISONE
     Indication: Product used for unknown indication
     Dosage: TAKE 1 TABLET BY MOUTH TWICE DAILY
     Route: 048
  28. LISINOPRIL [Concomitant]
     Active Substance: LISINOPRIL
     Indication: Product used for unknown indication
     Dosage: TAKE 1 TABLET BY MOUTH DAILY
     Route: 048
  29. LOSARTAN [Concomitant]
     Active Substance: LOSARTAN
     Indication: Product used for unknown indication
     Dosage: TAKE 1 TABLET BY MOUTH EVERY DAY
     Route: 048
  30. METHYLPREDNISOLONE [Concomitant]
     Active Substance: METHYLPREDNISOLONE
     Indication: Product used for unknown indication
     Dosage: DOS PAK 21 S FOLLOW PACKAGE DIRECTION
     Route: 048
  31. METOPROLOL SUCCINATE [Concomitant]
     Active Substance: METOPROLOL SUCCINATE
     Indication: Product used for unknown indication
     Dosage: TAKE 1 TABLET BY MOUTH EVERY DAY
     Route: 048
  32. MULTAQ [Concomitant]
     Active Substance: DRONEDARONE
     Indication: Product used for unknown indication
     Dosage: TAKE 1 TABLET(400 MG) BY MOUTH IN HE MORNING AND IN THE EVENING WITH MEALS.
     Route: 048
  33. MUPIROCIN [Concomitant]
     Active Substance: MUPIROCIN
     Indication: Product used for unknown indication
     Dosage: 22 GM APPLY A SMALL AMOUNT TO THE AFFECTED AREA THREE TIMES DAILY FOR 5 DAYS.
  34. PANTOPRAZOLE [Concomitant]
     Active Substance: PANTOPRAZOLE
     Indication: Product used for unknown indication
     Dosage: TAKE 1 TABLET (40 MG)BY MOUTH TWICE DAILY
     Route: 048
  35. CLAVULANATE POTASSIUM [Concomitant]
     Active Substance: CLAVULANATE POTASSIUM
     Indication: Product used for unknown indication
     Dosage: TAKE 1 TABLET BY MOUTH EVERY DAY
     Route: 048
  36. PREGABALIN [Concomitant]
     Active Substance: PREGABALIN
     Indication: Product used for unknown indication
     Dosage: TAKE 1 CAPSULE BY MOUTH THREE TIMES DAILY FOR 15 DAYS
     Route: 048
  37. SILDENAFIL [Concomitant]
     Active Substance: SILDENAFIL
     Indication: Product used for unknown indication
     Dosage: TAKE 1 TABLET BY MOUTH EVERY DAY 1 HOUR BEFORE SEXUAL ACTIVITY
     Route: 048
  38. TADALAFIL [Concomitant]
     Active Substance: TADALAFIL
     Indication: Product used for unknown indication
     Dosage: TAKE 1 TABLET BY MOUTH EVERY DAY
     Route: 048
  39. TESTOSTERONE CYPIONATE [Concomitant]
     Active Substance: TESTOSTERONE CYPIONATE
     Indication: Product used for unknown indication
     Dosage: 200 MG/ML SDV 1 ML BRING TO OFFICE FOR WEEKLY INJECTION
  40. TESTOSTERONE CYPIONATE [Concomitant]
     Active Substance: TESTOSTERONE CYPIONATE
     Dosage: 200 MG/ML SDV 1 ML INJECT 0.5 ML EVERY 7 DAYS.
  41. FISH OIL [Concomitant]
     Active Substance: FISH OIL
     Indication: Product used for unknown indication
     Route: 048
  42. POTASSIUM CHLORIDE [Concomitant]
     Active Substance: POTASSIUM CHLORIDE
     Indication: Product used for unknown indication
     Route: 048
  43. CHOLECALCIFEROL [Concomitant]
     Active Substance: CHOLECALCIFEROL
     Indication: Product used for unknown indication
     Dosage: 1000 IU SOFTGELS

REACTIONS (2)
  - Septic shock [Fatal]
  - COVID-19 [Fatal]
